FAERS Safety Report 5236346-7 (Version None)
Quarter: 2007Q1

REPORT INFORMATION
  Report Type: 
  Country: None (occurrence: None)
  Receive Date: 20061208
  Receipt Date: 20060208
  Transmission Date: 20070707
  Serious: Yes (Other)
  Sender: FDA-Public Use
  Company Number: 2006UW02139

PATIENT
  Age: 62 Year

DRUGS (1)
  1. CRESTOR [Suspect]
     Dosage: 10 MG ONCE PO
     Route: 048
     Dates: start: 20060207

REACTIONS (2)
  - HYPERSENSITIVITY [None]
  - SOMNOLENCE [None]
